FAERS Safety Report 23101785 (Version 2)
Quarter: 2023Q4

REPORT INFORMATION
  Report Type: Spontaneous
  Country: US (occurrence: US)
  Receive Date: 20231025
  Receipt Date: 20231204
  Transmission Date: 20240110
  Serious: Yes (Other)
  Sender: FDA-Public Use
  Company Number: ENDB23-03938

PATIENT
  Age: 5 Year
  Sex: Female

DRUGS (3)
  1. SUPPRELIN LA [Suspect]
     Active Substance: HISTRELIN ACETATE
     Indication: Precocious puberty
     Dosage: 50 MILLIGRAM, UNKNOWN
     Route: 058
     Dates: start: 20220922
  2. SUPPRELIN LA [Suspect]
     Active Substance: HISTRELIN ACETATE
     Indication: Precocious puberty
     Dosage: 50 MILLIGRAM, UNKNOWN
     Route: 058
     Dates: start: 20220922
  3. SUPPRELIN LA [Suspect]
     Active Substance: HISTRELIN ACETATE
     Indication: Precocious puberty
     Dosage: 50 MILLIGRAM, UNKNOWN
     Route: 058
     Dates: start: 20220922

REACTIONS (3)
  - Pneumonia [Unknown]
  - Mood swings [Not Recovered/Not Resolved]
  - Incorrect product administration duration [Not Recovered/Not Resolved]

NARRATIVE: CASE EVENT DATE: 20230101
